FAERS Safety Report 24680304 (Version 2)
Quarter: 2024Q4

REPORT INFORMATION
  Report Type: Spontaneous
  Country: US (occurrence: US)
  Receive Date: 20241129
  Receipt Date: 20241204
  Transmission Date: 20250114
  Serious: No
  Sender: JOHNSON AND JOHNSON
  Company Number: US-JNJFOC-20241131546

PATIENT
  Age: 85 Year
  Sex: Female

DRUGS (2)
  1. XARELTO [Suspect]
     Active Substance: RIVAROXABAN
     Indication: Product used for unknown indication
     Route: 048
     Dates: end: 202411
  2. XARELTO [Suspect]
     Active Substance: RIVAROXABAN
     Dosage: RESTARTED
     Route: 048
     Dates: start: 20241114

REACTIONS (5)
  - Arthralgia [Unknown]
  - Pain [Unknown]
  - Nasopharyngitis [Unknown]
  - Insomnia [Unknown]
  - Adverse event [Unknown]

NARRATIVE: CASE EVENT DATE: 20241101
